FAERS Safety Report 4845912-X (Version None)
Quarter: 2005Q4

REPORT INFORMATION
  Report Type: 
  Country: None (occurrence: None)
  Receive Date: 20051201
  Receipt Date: 20051121
  Transmission Date: 20060501
  Serious: Yes (Other)
  Sender: FDA-Public Use
  Company Number: 2005158785

PATIENT

DRUGS (1)
  1. NORVASC [Suspect]
     Indication: ILL-DEFINED DISORDER

REACTIONS (4)
  - CONTUSION [None]
  - FACIAL OPERATION [None]
  - HAEMATOMA [None]
  - HAEMORRHAGE [None]
